FAERS Safety Report 8102460-1 (Version None)
Quarter: 2012Q1

REPORT INFORMATION
  Report Type: 
  Country: None (occurrence: None)
  Receive Date: 20120126
  Receipt Date: 20120113
  Transmission Date: 20120608
  Serious: Yes (Death)
  Sender: FDA-Public Use
  Company Number: UTC-014638

PATIENT
  Age: 64 Year
  Sex: Female
  Weight: 73.64 kg

DRUGS (6)
  1. TYVASO [Suspect]
     Indication: COR PULMONALE CHRONIC
     Dosage: 18-54 MICROGRAMS (4 IN 1 D), INHALATION
     Route: 055
     Dates: start: 20110411
  2. COUMADIN [Concomitant]
  3. LANOXIN [Concomitant]
  4. ADCIRCA [Concomitant]
  5. DIURETICS [Concomitant]
  6. TRACLEER [Concomitant]

REACTIONS (1)
  - DEATH [None]
